FAERS Safety Report 21265680 (Version 1)
Quarter: 2022Q3

REPORT INFORMATION
  Report Type: Spontaneous
  Country: US (occurrence: None)
  Receive Date: 20220828
  Receipt Date: 20220828
  Transmission Date: 20221027
  Serious: Yes (unspecified)
  Sender: FDA-Public Use
  Company Number: None

PATIENT
  Age: 17 Year
  Sex: Female
  Weight: 98.1 kg

DRUGS (1)
  1. LO LOESTRIN FE [Suspect]
     Active Substance: ETHINYL ESTRADIOL\NORETHINDRONE ACETATE

REACTIONS (1)
  - Mental disorder [None]

NARRATIVE: CASE EVENT DATE: 20180830
